FAERS Safety Report 5313458-0 (Version None)
Quarter: 2007Q2

REPORT INFORMATION
  Report Type: 
  Country: None (occurrence: None)
  Receive Date: 20070501
  Receipt Date: 20070419
  Transmission Date: 20071010
  Serious: Yes (Death, Hospitalization)
  Sender: FDA-Public Use
  Company Number: FR-AVENTIS-200713187GDDC

PATIENT
  Age: 81 Year
  Sex: Female

DRUGS (13)
  1. DOCETAXEL [Suspect]
     Route: 042
     Dates: start: 20070122
  2. BLINDED BEVACIZUMAB [Suspect]
     Route: 042
     Dates: start: 20070122
  3. TRIATEC                            /00885601/ [Concomitant]
     Dosage: DOSE: UNK
     Dates: start: 19970615
  4. LOXEN [Concomitant]
     Dosage: DOSE: UNK
     Dates: start: 20070130
  5. PREVISCAN                          /00789001/ [Concomitant]
     Dosage: DOSE: UNK
     Dates: start: 20010615
  6. DEROXAT [Concomitant]
     Dosage: DOSE: UNK
     Dates: start: 20061229
  7. SERESTA [Concomitant]
     Dosage: DOSE: UNK
     Dates: start: 20060615
  8. STILNOX                            /00914901/ [Concomitant]
     Dosage: DOSE: UNK
  9. PRIMPERAN                          /00041901/ [Concomitant]
     Dosage: DOSE: UNK
  10. OXYGEN [Concomitant]
     Dosage: DOSE QUANTITY: 2; DOSE UNIT: LITRE PER MINUTE
     Dates: start: 20061229
  11. SMECTA                             /01255901/ [Concomitant]
     Dosage: DOSE: UNK
  12. TIORFAN [Concomitant]
     Dosage: DOSE: UNK
  13. FLAGYL [Concomitant]
     Dosage: DOSE: UNK

REACTIONS (4)
  - DEHYDRATION [None]
  - MUCOSAL INFLAMMATION [None]
  - RENAL FAILURE ACUTE [None]
  - SEPTIC SHOCK [None]
